FAERS Safety Report 17884648 (Version 2)
Quarter: 2020Q3

REPORT INFORMATION
  Report Type: Spontaneous
  Country: US (occurrence: US)
  Receive Date: 20200611
  Receipt Date: 20200706
  Transmission Date: 20201103
  Serious: Yes (Hospitalization)
  Sender: FDA-Public Use
  Company Number: US-ROCHE-2617741

PATIENT
  Age: 75 Year
  Sex: Female
  Weight: 54.7 kg

DRUGS (3)
  1. ACTIVASE [Suspect]
     Active Substance: ALTEPLASE
     Indication: CEREBROVASCULAR ACCIDENT
     Route: 042
     Dates: start: 20200603, end: 20200603
  2. ACTIVASE [Suspect]
     Active Substance: ALTEPLASE
     Indication: ISCHAEMIC STROKE
     Route: 042
     Dates: start: 20200603, end: 20200603
  3. ISOVUE 370 [Concomitant]
     Active Substance: IOPAMIDOL
     Route: 042
     Dates: start: 20200603, end: 20200603

REACTIONS (4)
  - Cerebral haemorrhage [Recovering/Resolving]
  - Haemorrhagic stroke [Unknown]
  - Headache [Unknown]
  - Asthenia [Unknown]

NARRATIVE: CASE EVENT DATE: 20200604
